FAERS Safety Report 11498070 (Version 1)
Quarter: 2015Q3

REPORT INFORMATION
  Report Type: Spontaneous
  Country: US (occurrence: US)
  Receive Date: 20150911
  Receipt Date: 20150911
  Transmission Date: 20151125
  Serious: Yes (Other)
  Sender: FDA-Public Use
  Company Number: US-BAYER-2015-416156

PATIENT
  Sex: Female

DRUGS (1)
  1. ALEVE [Suspect]
     Active Substance: NAPROXEN SODIUM
     Indication: BACK PAIN
     Dosage: 1 DF, PRN
     Route: 048
     Dates: start: 201508

REACTIONS (6)
  - Diarrhoea [None]
  - Expired product administered [None]
  - Gastrointestinal pain [None]
  - Gluten sensitivity [None]
  - Product use issue [Unknown]
  - Abdominal distension [None]

NARRATIVE: CASE EVENT DATE: 201508
